FAERS Safety Report 23671275 (Version 2)
Quarter: 2024Q2

REPORT INFORMATION
  Report Type: Spontaneous
  Country: IT (occurrence: IT)
  Receive Date: 20240326
  Receipt Date: 20240403
  Transmission Date: 20240715
  Serious: Yes (Hospitalization, Other)
  Sender: FDA-Public Use
  Company Number: None

PATIENT
  Age: 46 Year
  Sex: Male

DRUGS (15)
  1. CEPHALEXIN [Interacting]
     Active Substance: CEPHALEXIN
     Indication: Antibiotic therapy
     Dosage: 2 GRAM, TID (EVERY 8 HOUR)
     Route: 065
  2. CEPHALEXIN [Interacting]
     Active Substance: CEPHALEXIN
     Dosage: 2 GRAM, TID (EVERY 8 HOUR)
     Route: 065
  3. EVEROLIMUS [Suspect]
     Active Substance: EVEROLIMUS
     Indication: Immunosuppressant drug therapy
     Dosage: 1.5 MILLIGRAM, BID (EVERY 12 HOURS)
     Route: 065
  4. FOSFOMYCIN [Interacting]
     Active Substance: FOSFOMYCIN
     Indication: Antibiotic therapy
     Dosage: 16 GRAM, QD (EVERY 1 DAY), INFUSION
     Route: 065
  5. MYCOPHENOLATE MOFETIL [Interacting]
     Active Substance: MYCOPHENOLATE MOFETIL
     Indication: Immunosuppressant drug therapy
     Dosage: 1500 MILLIGRAM, QD (EVERY 1 DAY)
     Route: 065
  6. AZITHROMYCIN [Interacting]
     Active Substance: AZITHROMYCIN
     Indication: Antibiotic therapy
     Dosage: 500 MILLIGRAM, QD (EVERY 1 DAY)
     Route: 048
  7. LEVOFLOXACIN [Interacting]
     Active Substance: LEVOFLOXACIN
     Indication: Antibiotic therapy
     Dosage: 500 MILLIGRAM, QD (EVERY 1 DAY)
     Route: 065
  8. PIPERACILLIN SODIUM\TAZOBACTAM SODIUM [Interacting]
     Active Substance: PIPERACILLIN SODIUM\TAZOBACTAM SODIUM
     Indication: Antibiotic therapy
     Dosage: 16 GRAM, QD (EVERY 1 DAY), INFUSION
     Route: 065
  9. AMIKACIN [Interacting]
     Active Substance: AMIKACIN
     Indication: Antibiotic therapy
     Dosage: 1 GRAM, QD (EVERY 1 DAY)
     Route: 042
  10. MEROPENEM [Interacting]
     Active Substance: MEROPENEM
     Indication: Antibiotic therapy
     Dosage: 2 GRAM, TID (EVERY 8 HOUR)
     Route: 042
  11. SULFAMETHOXAZOLE\TRIMETHOPRIM [Interacting]
     Active Substance: SULFAMETHOXAZOLE\TRIMETHOPRIM
     Indication: Product used for unknown indication
     Dosage: 1 DOSAGE FORM, BID (EVERY 12 HOUR)
     Route: 065
  12. CALCIUM CARBONATE [Concomitant]
     Active Substance: CALCIUM CARBONATE
     Indication: Osteoporosis
     Dosage: UNK
     Route: 065
  13. CHOLECALCIFEROL [Concomitant]
     Active Substance: CHOLECALCIFEROL
     Indication: Osteoporosis
     Dosage: UNK
     Route: 065
  14. INSULIN GLARGINE [Concomitant]
     Active Substance: INSULIN GLARGINE
     Indication: Type 1 diabetes mellitus
     Dosage: UNK
     Route: 065
  15. INSULIN LISPRO [Concomitant]
     Active Substance: INSULIN LISPRO
     Indication: Type 1 diabetes mellitus
     Dosage: UNK
     Route: 065

REACTIONS (5)
  - Immunosuppressant drug level decreased [Recovered/Resolved]
  - Drug interaction [Unknown]
  - Pseudomonas infection [Unknown]
  - Pneumonia [Unknown]
  - H1N1 influenza [Unknown]
